FAERS Safety Report 18268844 (Version 1)
Quarter: 2020Q3

REPORT INFORMATION
  Report Type: Spontaneous
  Country: TR (occurrence: TR)
  Receive Date: 20200915
  Receipt Date: 20200915
  Transmission Date: 20201103
  Serious: Yes (Hospitalization, Other)
  Sender: FDA-Public Use
  Company Number: TR-TEVA-2020-TR-1828526

PATIENT
  Age: 34 Year

DRUGS (2)
  1. COPAXONE [Suspect]
     Active Substance: GLATIRAMER ACETATE
     Indication: MULTIPLE SCLEROSIS
     Route: 058
     Dates: start: 2020
  2. COLLAGEN POWDER [Concomitant]
     Dates: start: 202009

REACTIONS (5)
  - Lipase increased [Not Recovered/Not Resolved]
  - Pancreatitis acute [Unknown]
  - Abdominal pain upper [Unknown]
  - Dyspnoea [Unknown]
  - Amylase increased [Recovering/Resolving]

NARRATIVE: CASE EVENT DATE: 2020
